FAERS Safety Report 10301398 (Version 1)
Quarter: 2014Q3

REPORT INFORMATION
  Report Type: Spontaneous
  Country: HK (occurrence: HK)
  Receive Date: 20140714
  Receipt Date: 20140714
  Transmission Date: 20150326
  Serious: Yes (Other)
  Sender: FDA-Public Use
  Company Number: HK-PAR PHARMACEUTICAL, INC-2014SCPR009253

PATIENT

DRUGS (1)
  1. KETALAR [Suspect]
     Active Substance: KETAMINE HYDROCHLORIDE
     Indication: DRUG DIVERSION
     Dosage: UNK, UNKNOWN

REACTIONS (4)
  - Abdominal pain [None]
  - Biliary tract disorder [Unknown]
  - Liver function test abnormal [Unknown]
  - Drug abuse [Unknown]
